FAERS Safety Report 25471395 (Version 1)
Quarter: 2025Q2

REPORT INFORMATION
  Report Type: Spontaneous
  Country: US (occurrence: US)
  Receive Date: 20250624
  Receipt Date: 20250624
  Transmission Date: 20250716
  Serious: No
  Sender: GLENMARK
  Company Number: US-GLENMARK PHARMACEUTICALS-2024GMK092454

PATIENT

DRUGS (10)
  1. MUPIROCIN [Suspect]
     Active Substance: MUPIROCIN
     Indication: Neoplasm skin
     Dosage: UNK, TID, THREE TIMES A DAY
     Route: 061
     Dates: start: 20240702
  2. MUPIROCIN [Suspect]
     Active Substance: MUPIROCIN
     Dosage: UNK, BID
     Route: 061
  3. NITROGLYCERIN [Suspect]
     Active Substance: NITROGLYCERIN
     Indication: Product used for unknown indication
     Route: 065
  4. LEVOTHYROXINE [Concomitant]
     Active Substance: LEVOTHYROXINE
     Indication: Thyroid disorder
     Route: 065
  5. DIETARY SUPPLEMENT [Concomitant]
     Active Substance: DIETARY SUPPLEMENT
     Indication: Product used for unknown indication
     Route: 065
  6. VITAMIN D3 [Concomitant]
     Active Substance: CHOLECALCIFEROL
     Indication: Product used for unknown indication
     Route: 065
  7. B12 [Concomitant]
     Indication: Product used for unknown indication
     Route: 065
  8. VITAMIN C [Concomitant]
     Active Substance: ASCORBIC ACID
     Indication: Product used for unknown indication
     Route: 065
  9. Prostate 1 [Concomitant]
     Indication: Product used for unknown indication
     Route: 065
  10. DIETARY SUPPLEMENT [Concomitant]
     Active Substance: DIETARY SUPPLEMENT
     Indication: Product used for unknown indication
     Route: 065

REACTIONS (2)
  - Dizziness [Recovered/Resolved]
  - Product use in unapproved indication [Unknown]
